FAERS Safety Report 6076366-6 (Version None)
Quarter: 2009Q1

REPORT INFORMATION
  Report Type: 
  Country: None (occurrence: None)
  Receive Date: 20090213
  Receipt Date: 20090205
  Transmission Date: 20090719
  Serious: Yes (Hospitalization)
  Sender: FDA-Public Use
  Company Number: GB-RANBAXY-2009RR-21596

PATIENT
  Age: 43 Year
  Sex: Male

DRUGS (1)
  1. ACETAMINOPHEN [Suspect]
     Dosage: 15 G, UNK

REACTIONS (3)
  - CHEST PAIN [None]
  - HAEMOLYTIC ANAEMIA [None]
  - INTENTIONAL OVERDOSE [None]
